FAERS Safety Report 17494794 (Version 1)
Quarter: 2020Q1

REPORT INFORMATION
  Report Type: Spontaneous
  Country: US (occurrence: US)
  Receive Date: 20200303
  Receipt Date: 20200303
  Transmission Date: 20200409
  Serious: Yes (Hospitalization)
  Sender: FDA-Public Use
  Company Number: None

PATIENT
  Age: 74 Year
  Sex: Male

DRUGS (1)
  1. BUSPIRONE [Suspect]
     Active Substance: BUSPIRONE HYDROCHLORIDE
     Indication: ANXIETY
     Route: 048
     Dates: start: 20191122, end: 20191126

REACTIONS (7)
  - Condition aggravated [None]
  - Restless legs syndrome [None]
  - Dysarthria [None]
  - Headache [None]
  - Insomnia [None]
  - Dizziness [None]
  - Miosis [None]

NARRATIVE: CASE EVENT DATE: 20191122
